FAERS Safety Report 5397145-9 (Version None)
Quarter: 2007Q3

REPORT INFORMATION
  Report Type: 
  Country: None (occurrence: None)
  Receive Date: 20070723
  Receipt Date: 20070709
  Transmission Date: 20080115
  Serious: Yes (Hospitalization)
  Sender: FDA-Public Use
  Company Number: 2007-03358

PATIENT
  Age: 58 Year
  Sex: Female

DRUGS (4)
  1. INFED [Suspect]
     Indication: ANAEMIA OF MALIGNANT DISEASE
     Dosage: 400 MG, SINGLE, INTRAVENOUS
     Route: 042
     Dates: start: 20070516, end: 20070516
  2. ETOPOSIDE [Suspect]
     Indication: TESTIS CANCER
  3. DARBEPOETIN ALFA (DARBEPOETIN ALFA) [Suspect]
     Indication: ANAEMIA OF MALIGNANT DISEASE
     Dosage: 1 ML, SINGLE, SUBCUTANEOUS
     Route: 058
     Dates: start: 20070516, end: 20070516
  4. CISPLATIN [Suspect]
     Indication: DRUG USE FOR UNKNOWN INDICATION

REACTIONS (8)
  - CHEST PAIN [None]
  - DEEP VEIN THROMBOSIS [None]
  - FEBRILE NEUTROPENIA [None]
  - HAEMATOCRIT DECREASED [None]
  - HAEMOGLOBIN DECREASED [None]
  - PNEUMONIA [None]
  - PRODUCTIVE COUGH [None]
  - RENAL FAILURE ACUTE [None]
